FAERS Safety Report 7995195-7 (Version None)
Quarter: 2011Q4

REPORT INFORMATION
  Report Type: 
  Country: None (occurrence: None)
  Receive Date: 20111220
  Receipt Date: 20111213
  Transmission Date: 20120403
  Serious: No
  Sender: FDA-Public Use
  Company Number: US-B.I. PHARMACEUTICALS,INC./RIDGEFIELD-2011-BP-27984BP

PATIENT
  Sex: Male

DRUGS (2)
  1. ZANTAC 150 [Suspect]
     Indication: DYSPEPSIA
     Route: 048
  2. CALCIUM CARBONATE [Suspect]
     Indication: DYSPEPSIA
     Route: 048

REACTIONS (2)
  - FLATULENCE [None]
  - ABDOMINAL PAIN UPPER [None]
